FAERS Safety Report 6639271-X (Version None)
Quarter: 2010Q1

REPORT INFORMATION
  Report Type: 
  Country: None (occurrence: None)
  Receive Date: 20100315
  Receipt Date: 20100301
  Transmission Date: 20100710
  Serious: Yes (Hospitalization, Other)
  Sender: FDA-Public Use
  Company Number: 2009-03744

PATIENT
  Age: 77 Year
  Sex: Male
  Weight: 83.7 kg

DRUGS (8)
  1. VELCADE [Suspect]
     Indication: NON-HODGKIN'S LYMPHOMA
     Dosage: 0.90 MG/M2, INTRAVENOUS
     Route: 042
     Dates: start: 20090727, end: 20090810
  2. BEXXAR [Suspect]
     Indication: NON-HODGKIN'S LYMPHOMA
     Dosage: 71.6 MCI, INTRAVENOUS
     Route: 042
     Dates: start: 20090722, end: 20090729
  3. DYAZIDE [Concomitant]
  4. BACTRIM [Concomitant]
  5. VALTREX [Concomitant]
  6. APAP CODEINE (CODEINE PHOSPHATE, PARACETAMOL) [Concomitant]
  7. VICODIN [Concomitant]
  8. LORAZEPAM [Concomitant]

REACTIONS (3)
  - HERPES ZOSTER [None]
  - MUSCULOSKELETAL CHEST PAIN [None]
  - NON-CARDIAC CHEST PAIN [None]
